FAERS Safety Report 9915189 (Version 1)
Quarter: 2014Q1

REPORT INFORMATION
  Report Type: Report from Study
  Country: NL (occurrence: NL)
  Receive Date: 20140220
  Receipt Date: 20140220
  Transmission Date: 20141002
  Serious: Yes (Hospitalization, Other)
  Sender: FDA-Public Use
  Company Number: NL-ASTRAZENECA-2014SE10775

PATIENT
  Age: 59 Year
  Sex: Female

DRUGS (7)
  1. TICAGRELOR [Suspect]
     Indication: ACUTE CORONARY SYNDROME
     Route: 048
     Dates: start: 20131209
  2. ACETYLSALICYLIC ACID [Suspect]
     Indication: ACUTE CORONARY SYNDROME
     Route: 048
     Dates: start: 20131209
  3. METOPROLOL MGA [Concomitant]
  4. VALSARTAN [Concomitant]
  5. ENALAPRIL [Concomitant]
  6. ATORVASTATINE [Concomitant]
  7. PANTOPRAZOL [Concomitant]

REACTIONS (1)
  - Angina unstable [Recovered/Resolved]
